FAERS Safety Report 24442879 (Version 2)
Quarter: 2024Q4

REPORT INFORMATION
  Report Type: Report from Study
  Country: JP (occurrence: JP)
  Receive Date: 20241016
  Receipt Date: 20241017
  Transmission Date: 20250115
  Serious: No
  Sender: ROCHE
  Company Number: JP-CHUGAI-2024015210

PATIENT
  Age: 1 Year
  Sex: Male
  Weight: 10.2 kg

DRUGS (4)
  1. HEMLIBRA [Suspect]
     Active Substance: EMICIZUMAB-KXWH
     Indication: Factor VIII deficiency
     Dosage: 3 MILLIGRAM/KILOGRAM
     Route: 058
     Dates: start: 20230803
  2. HEMLIBRA [Suspect]
     Active Substance: EMICIZUMAB-KXWH
     Dosage: 3 MILLIGRAM/KILOGRAM, ONCE/2WEEKS
     Route: 058
     Dates: start: 20230831
  3. HEMLIBRA [Suspect]
     Active Substance: EMICIZUMAB-KXWH
     Dosage: 3 MILLIGRAM/KILOGRAM
     Route: 058
     Dates: start: 20230914
  4. HEMLIBRA [Suspect]
     Active Substance: EMICIZUMAB-KXWH
     Route: 058
     Dates: end: 20240313

REACTIONS (2)
  - Traumatic haemorrhage [Unknown]
  - Mouth injury [Unknown]

NARRATIVE: CASE EVENT DATE: 20231115
